FAERS Safety Report 7298820-1 (Version None)
Quarter: 2011Q1

REPORT INFORMATION
  Report Type: 
  Country: None (occurrence: None)
  Receive Date: 20110217
  Receipt Date: 20110208
  Transmission Date: 20110831
  Serious: Yes (Other)
  Sender: FDA-Public Use
  Company Number: US-ROCHE-757039

PATIENT
  Age: 63 Year
  Sex: Male

DRUGS (7)
  1. CETUXIMAB [Suspect]
     Route: 042
     Dates: end: 20100615
  2. ALPRAZOLAM [Concomitant]
     Route: 048
  3. NASACORT [Concomitant]
     Dosage: 2X/DAY
     Route: 055
  4. BEVACIZUMAB [Suspect]
     Dosage: LAST DOSE PRIOR TO SAE: 10 JUN 2010.
     Route: 042
     Dates: start: 20100511, end: 20100610
  5. OXYCODONE [Concomitant]
     Dosage: EVERY ONE HOUR AS NEEDED. DOSE: 5ML=5MG
     Route: 048
  6. SALIVA SUBSTITUTE [Concomitant]
     Dosage: 2 SPRAY, AS NEEDED.
     Route: 055
  7. CISPLATIN [Suspect]
     Dosage: ROUTE AS PER PROTOCOL
     Route: 042
     Dates: end: 20100615

REACTIONS (1)
  - OESOPHAGEAL STENOSIS [None]
